FAERS Safety Report 20902846 (Version 2)
Quarter: 2022Q2

REPORT INFORMATION
  Report Type: Spontaneous
  Country: MX (occurrence: MX)
  Receive Date: 20220601
  Receipt Date: 20220621
  Transmission Date: 20220721
  Serious: Yes (Death)
  Sender: FDA-Public Use
  Company Number: MX-BAYER-2022P003331

PATIENT
  Age: 3 Year
  Sex: Male

DRUGS (2)
  1. VITRAKVI [Suspect]
     Active Substance: LAROTRECTINIB
     Indication: Mesoblastic nephroma
     Dosage: UNK
     Dates: start: 20210917
  2. VITRAKVI [Suspect]
     Active Substance: LAROTRECTINIB
     Indication: Lung disorder

REACTIONS (2)
  - Mesoblastic nephroma [Fatal]
  - Acute respiratory failure [Fatal]
